FAERS Safety Report 10190781 (Version 2)
Quarter: 2014Q2

REPORT INFORMATION
  Report Type: Report from Study
  Country: US (occurrence: US)
  Receive Date: 20140523
  Receipt Date: 20140523
  Transmission Date: 20141212
  Serious: Yes (Other)
  Sender: FDA-Public Use
  Company Number: US-ROCHE-1322432

PATIENT
  Age: 15 Year
  Sex: Male

DRUGS (2)
  1. SOMATROPIN [Suspect]
     Indication: GROWTH HORMONE DEFICIENCY
     Route: 058
     Dates: start: 201212
  2. SOMATROPIN [Suspect]
     Route: 058

REACTIONS (6)
  - Weight increased [Unknown]
  - Growth retardation [Unknown]
  - Alopecia [Unknown]
  - Weight decreased [Unknown]
  - Bone development abnormal [Unknown]
  - Breast mass [Unknown]
